FAERS Safety Report 20887218 (Version 1)
Quarter: 2022Q2

REPORT INFORMATION
  Report Type: Spontaneous
  Country: US (occurrence: US)
  Receive Date: 20220528
  Receipt Date: 20220528
  Transmission Date: 20220721
  Serious: Yes (Hospitalization)
  Sender: FDA-Public Use
  Company Number: CID000000000025012

PATIENT
  Age: 71 Year
  Sex: Female

DRUGS (2)
  1. LETROZOLE [Suspect]
     Active Substance: LETROZOLE
     Dosage: 2.5 MILLIGRAM DAILY;
     Route: 065
     Dates: start: 202112
  2. ANASTROZOLE [Suspect]
     Active Substance: ANASTROZOLE
     Route: 065

REACTIONS (4)
  - Muscle spasms [Unknown]
  - Arthralgia [Unknown]
  - Sitting disability [Unknown]
  - Dysstasia [Unknown]

NARRATIVE: CASE EVENT DATE: 20220401
